FAERS Safety Report 8840711 (Version 3)
Quarter: 2012Q4

REPORT INFORMATION
  Report Type: 
  Country: JP (occurrence: JP)
  Receive Date: 20121015
  Receipt Date: 20121121
  Transmission Date: 20130627
  Serious: Yes (Hospitalization)
  Sender: FDA-Public Use
  Company Number: JP-PFIZER INC-2012251412

PATIENT
  Age: 12 Year
  Sex: Male

DRUGS (1)
  1. RELPAX [Suspect]
     Indication: HEADACHE
     Dosage: UNK
     Route: 048
     Dates: start: 200706

REACTIONS (1)
  - Cerebral vasoconstriction [Recovered/Resolved]
